FAERS Safety Report 16020344 (Version 4)
Quarter: 2019Q2

REPORT INFORMATION
  Report Type: Report from Study
  Country: US (occurrence: US)
  Receive Date: 20190228
  Receipt Date: 20190404
  Transmission Date: 20190711
  Serious: Yes (Death, Hospitalization)
  Sender: FDA-Public Use
  Company Number: US-BAXTER-2019BAX003919

PATIENT
  Age: 51 Year
  Sex: Female
  Weight: 54.4 kg

DRUGS (16)
  1. MESNEX [Suspect]
     Active Substance: MESNA
     Indication: SOFT TISSUE SARCOMA
     Dosage: LAST DOSE PRIOR TO SAE
     Route: 042
     Dates: start: 20181220, end: 20181220
  2. DOXORUBICIN [Suspect]
     Active Substance: DOXORUBICIN
     Indication: SARCOMA METASTATIC
     Dosage: ON DAYS ONE TO THREE OF EACH 21 DAY CYCLE
     Route: 042
     Dates: start: 20181126, end: 20181126
  3. DOXORUBICIN [Suspect]
     Active Substance: DOXORUBICIN
     Indication: SOFT TISSUE SARCOMA
     Dosage: LAST DOSE PRIOR TO SAE
     Route: 042
     Dates: start: 20181219, end: 20181219
  4. IFOSFAMIDE FOR INJECTION [Suspect]
     Active Substance: IFOSFAMIDE
     Indication: SOFT TISSUE SARCOMA
     Dosage: LAST DOSE PRIOR TO SAE
     Route: 042
     Dates: start: 20181220, end: 20181220
  5. OXYCODONE [Concomitant]
     Active Substance: OXYCODONE
     Indication: PAIN IN EXTREMITY
     Route: 065
     Dates: start: 201710
  6. BUPROPION. [Concomitant]
     Active Substance: BUPROPION
     Indication: DEPRESSION
     Route: 065
     Dates: start: 201710
  7. MESNEX [Suspect]
     Active Substance: MESNA
     Indication: SARCOMA METASTATIC
     Dosage: AT A DOSE GREATER THAN OR EQUAL TO 60 PERCENT OF THE IFOSFAMIDE DOSE (1500 MG/M2 DAILY), ON DAYS ONE
     Route: 042
     Dates: start: 20181126, end: 20181126
  8. ZOLPIDEM [Concomitant]
     Active Substance: ZOLPIDEM\ZOLPIDEM TARTRATE
     Indication: INSOMNIA
     Route: 065
     Dates: start: 2015
  9. OLARATUMAB [Suspect]
     Active Substance: OLARATUMAB
     Indication: SARCOMA METASTATIC
     Dosage: ON DAYS ONE AND EIGHT OF EACH 21 DAY CYCLE
     Route: 042
     Dates: start: 20181126, end: 20181126
  10. LANSOPRAZOLE. [Concomitant]
     Active Substance: LANSOPRAZOLE
     Indication: GASTRITIS
     Route: 065
     Dates: start: 2005
  11. GABAPENTIN. [Concomitant]
     Active Substance: GABAPENTIN
     Indication: FIBROMYALGIA
     Route: 065
     Dates: start: 201709
  12. FENTANYL. [Concomitant]
     Active Substance: FENTANYL
     Indication: PAIN IN EXTREMITY
     Route: 065
     Dates: start: 201807
  13. IFOSFAMIDE FOR INJECTION [Suspect]
     Active Substance: IFOSFAMIDE
     Indication: SARCOMA METASTATIC
     Dosage: ON DAYS ONE TO FOUR OF EACH 21 DAY CYCLE
     Route: 042
     Dates: start: 20181126, end: 20181126
  14. OLARATUMAB [Suspect]
     Active Substance: OLARATUMAB
     Indication: SOFT TISSUE SARCOMA
     Dosage: LAST DOSE PRIOR TO SAE
     Route: 042
     Dates: start: 20181219, end: 20181219
  15. LEVOTHYROXINE. [Concomitant]
     Active Substance: LEVOTHYROXINE
     Indication: HYPOTHYROIDISM
     Route: 065
     Dates: start: 2010
  16. ENOXAPARIN [Concomitant]
     Active Substance: ENOXAPARIN
     Indication: DEEP VEIN THROMBOSIS
     Route: 065
     Dates: start: 20171026

REACTIONS (3)
  - Disease complication [Fatal]
  - Febrile neutropenia [Not Recovered/Not Resolved]
  - Pneumonia [Unknown]

NARRATIVE: CASE EVENT DATE: 20181228
